FAERS Safety Report 21425795 (Version 3)
Quarter: 2023Q1

REPORT INFORMATION
  Report Type: Report from Study
  Country: US (occurrence: US)
  Receive Date: 20221008
  Receipt Date: 20230125
  Transmission Date: 20230417
  Serious: Yes (Other)
  Sender: FDA-Public Use
  Company Number: US-ABBVIE-4139391

PATIENT
  Sex: Female

DRUGS (2)
  1. SKYRIZI [Suspect]
     Active Substance: RISANKIZUMAB-RZAA
     Indication: Psoriasis
     Dosage: FORM STRENGTH: 150 MG
     Route: 058
     Dates: start: 20220608
  2. SKYRIZI [Suspect]
     Active Substance: RISANKIZUMAB-RZAA
     Route: 058

REACTIONS (10)
  - Systemic lupus erythematosus [Recovering/Resolving]
  - Upper respiratory tract infection [Unknown]
  - Pain [Unknown]
  - Hiatus hernia [Unknown]
  - Sinusitis [Unknown]
  - Psoriasis [Unknown]
  - Pharyngitis [Unknown]
  - Ear infection [Unknown]
  - Influenza [Unknown]
  - Therapeutic response shortened [Unknown]
